FAERS Safety Report 9442089 (Version 2)
Quarter: 2013Q3

REPORT INFORMATION
  Report Type: Spontaneous
  Country: US (occurrence: US)
  Receive Date: 20130806
  Receipt Date: 20130916
  Transmission Date: 20140515
  Serious: Yes (Other)
  Sender: FDA-Public Use
  Company Number: US-009507513-1307USA013948

PATIENT
  Age: 59 Year
  Sex: Female
  Weight: 63.49 kg

DRUGS (3)
  1. VICTRELIS [Suspect]
     Dosage: 200 MG, UNK
     Route: 048
     Dates: end: 2013
  2. PEGASYS [Suspect]
     Dosage: 180MCG/M
  3. RIBAPAK [Suspect]
     Dosage: 600/DAY

REACTIONS (14)
  - Pancytopenia [Unknown]
  - Dyspepsia [Unknown]
  - Constipation [Unknown]
  - Abdominal pain upper [Unknown]
  - Vitreous floaters [Unknown]
  - Muscle spasms [Unknown]
  - Back pain [Unknown]
  - Nausea [Unknown]
  - Dry skin [Unknown]
  - Diarrhoea [Unknown]
  - Anaemia [Unknown]
  - Headache [Unknown]
  - Asthenia [Unknown]
  - Fatigue [Unknown]
